FAERS Safety Report 23626145 (Version 1)
Quarter: 2024Q1

REPORT INFORMATION
  Report Type: Spontaneous
  Country: US (occurrence: None)
  Receive Date: 20240312
  Receipt Date: 20240312
  Transmission Date: 20240410
  Serious: Yes (Hospitalization)
  Sender: FDA-Public Use
  Company Number: None

PATIENT
  Age: 84 Year
  Sex: Male

DRUGS (1)
  1. AMBRISENTAN [Suspect]
     Active Substance: AMBRISENTAN
     Indication: Pulmonary hypertension
     Dosage: 10MG ONCE DAILLY BY MOUTH
     Route: 048
     Dates: start: 202305

REACTIONS (3)
  - Pleural effusion [None]
  - Intra-abdominal fluid collection [None]
  - Oedema peripheral [None]

NARRATIVE: CASE EVENT DATE: 20240311
